FAERS Safety Report 24307829 (Version 1)
Quarter: 2024Q3

REPORT INFORMATION
  Report Type: Spontaneous
  Country: US (occurrence: None)
  Receive Date: 20240910
  Receipt Date: 20240910
  Transmission Date: 20241016
  Serious: No
  Sender: Public
  Company Number: None

PATIENT
  Sex: Female
  Weight: 67.5 kg

DRUGS (2)
  1. SERTRALINE HYDROCHLORIDE [Suspect]
     Active Substance: SERTRALINE HYDROCHLORIDE
     Indication: Depression
     Dosage: OTHER QUANTITY : 1 TABLET(S);?FREQUENCY : DAILY;?
     Route: 048
  2. LAMOTRIGINE [Suspect]
     Active Substance: LAMOTRIGINE

REACTIONS (7)
  - Dizziness [None]
  - Nausea [None]
  - Brain fog [None]
  - Heart rate increased [None]
  - Physical disability [None]
  - Emotional disorder [None]
  - Obsessive-compulsive disorder [None]
